FAERS Safety Report 8286693-X (Version None)
Quarter: 2012Q2

REPORT INFORMATION
  Report Type: 
  Country: None (occurrence: None)
  Receive Date: 20120416
  Receipt Date: 20120409
  Transmission Date: 20120825
  Serious: Yes (Hospitalization)
  Sender: FDA-Public Use
  Company Number: GB-PFIZER INC-2012086003

PATIENT
  Age: 23 Year
  Sex: Female

DRUGS (1)
  1. DOXYCYCLINE HYCLATE [Suspect]
     Indication: SEXUALLY TRANSMITTED DISEASE
     Dosage: 100 MG, TAKEN AFTERNOON EVENING (PM)
     Route: 048

REACTIONS (3)
  - FOREIGN BODY [None]
  - OESOPHAGEAL ULCER [None]
  - BURN OESOPHAGEAL [None]
